FAERS Safety Report 4550839-7 (Version None)
Quarter: 2005Q1

REPORT INFORMATION
  Report Type: 
  Country: None (occurrence: None)
  Receive Date: 20050112
  Receipt Date: 20050105
  Transmission Date: 20050727
  Serious: Yes (Hospitalization, Disabling)
  Sender: FDA-Public Use
  Company Number: US-MERCK-0501USA00385

PATIENT
  Age: 61 Year
  Sex: Male
  Weight: 95 kg

DRUGS (9)
  1. VIOXX [Suspect]
     Indication: ARTHRALGIA
     Route: 048
     Dates: end: 20040601
  2. VIOXX [Suspect]
     Route: 048
     Dates: start: 20040624
  3. ZOCOR [Concomitant]
     Indication: DYSLIPIDAEMIA
     Route: 048
     Dates: end: 20030411
  4. SYNTHROID [Concomitant]
     Route: 048
  5. LIPITOR [Concomitant]
     Indication: DYSLIPIDAEMIA
     Route: 048
  6. NIASPAN [Concomitant]
     Indication: DYSLIPIDAEMIA
     Route: 048
  7. ZANTAC [Concomitant]
     Route: 065
  8. PRILOSEC [Concomitant]
     Route: 048
  9. CRESTOR [Concomitant]
     Indication: DYSLIPIDAEMIA
     Route: 048

REACTIONS (11)
  - BARRETT'S OESOPHAGUS [None]
  - BURSITIS [None]
  - FATIGUE [None]
  - GASTROOESOPHAGEAL REFLUX DISEASE [None]
  - HAEMATURIA [None]
  - LIVER FUNCTION TEST ABNORMAL [None]
  - MALAISE [None]
  - OSTEOARTHRITIS [None]
  - PROSTATE CANCER [None]
  - THROMBOPHLEBITIS [None]
  - WRIST FRACTURE [None]
